FAERS Safety Report 6448300-8 (Version None)
Quarter: 2009Q4

REPORT INFORMATION
  Report Type: 
  Country: None (occurrence: None)
  Receive Date: 20091120
  Receipt Date: 20091111
  Transmission Date: 20100525
  Serious: Yes (Hospitalization)
  Sender: FDA-Public Use
  Company Number: PHEH2009US15601

PATIENT
  Sex: Female

DRUGS (3)
  1. EXJADE [Suspect]
     Indication: IRON OVERLOAD
     Dosage: 1500 MG, QD
     Route: 048
     Dates: start: 20080101
  2. OXYCONTIN [Concomitant]
     Dosage: 80 MG, Q8H
     Route: 048
  3. DILAUDID [Concomitant]
     Dosage: 8 MG, 1-2 TABS Q3H PRN
     Route: 048

REACTIONS (1)
  - PAIN [None]
